FAERS Safety Report 9136827 (Version 1)
Quarter: 2013Q1

REPORT INFORMATION
  Report Type: Spontaneous
  Country: AR (occurrence: AR)
  Receive Date: 20130304
  Receipt Date: 20130304
  Transmission Date: 20140127
  Serious: Yes (Other)
  Sender: FDA-Public Use
  Company Number: PHHY2013AR020421

PATIENT
  Age: 82 Year
  Sex: Female

DRUGS (1)
  1. DIOVAN [Suspect]
     Dosage: 1 DF, (40 MG) QD
     Route: 048

REACTIONS (4)
  - Pelvic fracture [Recovering/Resolving]
  - Osteoporosis [Unknown]
  - Fall [Unknown]
  - Injury [Unknown]
